FAERS Safety Report 24144958 (Version 1)
Quarter: 2024Q3

REPORT INFORMATION
  Report Type: Spontaneous
  Country: US (occurrence: US)
  Receive Date: 20240729
  Receipt Date: 20240729
  Transmission Date: 20241017
  Serious: No
  Sender: ENDO
  Company Number: US-ENDO USA, INC.-2024-001935

PATIENT
  Sex: Female

DRUGS (1)
  1. LABETALOL HYDROCHLORIDE [Suspect]
     Active Substance: LABETALOL\LABETALOL HYDROCHLORIDE
     Indication: Product used for unknown indication
     Dosage: 200 MILLIGRAM, UNKNOWN
     Route: 065

REACTIONS (2)
  - COVID-19 [Unknown]
  - Urticaria [Not Recovered/Not Resolved]
